FAERS Safety Report 24556958 (Version 1)
Quarter: 2024Q4

REPORT INFORMATION
  Report Type: Spontaneous
  Country: HN (occurrence: HN)
  Receive Date: 20241028
  Receipt Date: 20241028
  Transmission Date: 20250115
  Serious: Yes (Hospitalization)
  Sender: BAYER HEALTHCARE PHARMACEUTICALS INC.
  Company Number: HN-BAYER-2024A152625

PATIENT
  Age: 32 Year
  Sex: Female

DRUGS (2)
  1. DIANE (CYPROTERONE ACETATE\ETHINYL ESTRADIOL) [Suspect]
     Active Substance: CYPROTERONE ACETATE\ETHINYL ESTRADIOL
     Indication: Ovarian cyst
     Dosage: 1 DF
     Route: 048
     Dates: start: 2022, end: 202310
  2. YAZ [Suspect]
     Active Substance: DROSPIRENONE\ETHINYL ESTRADIOL
     Indication: Ovarian cyst
     Dosage: 1 DF
     Route: 048
     Dates: start: 2022, end: 202310

REACTIONS (5)
  - Ovarian cyst [Recovered/Resolved]
  - Adnexa uteri pain [Recovered/Resolved]
  - Pyrexia [Recovered/Resolved]
  - Gait disturbance [Recovered/Resolved]
  - Off label use [None]

NARRATIVE: CASE EVENT DATE: 20230801
